FAERS Safety Report 4423642-6 (Version None)
Quarter: 2004Q3

REPORT INFORMATION
  Report Type: 
  Country: None (occurrence: None)
  Receive Date: 20040719
  Receipt Date: 20040323
  Transmission Date: 20050211
  Serious: Yes (Hospitalization)
  Sender: FDA-Public Use
  Company Number: A03200400920

PATIENT
  Sex: Male

DRUGS (2)
  1. UROXATRAL [Suspect]
     Dosage: UNKNOWN
     Route: 065
  2. AMLODIPINE BESYLATE [Concomitant]

REACTIONS (1)
  - HYPOTENSION [None]
